FAERS Safety Report 14431593 (Version 11)
Quarter: 2019Q2

REPORT INFORMATION
  Report Type: Spontaneous
  Country: US (occurrence: US)
  Receive Date: 20180124
  Receipt Date: 20190507
  Transmission Date: 20190711
  Serious: Yes (Hospitalization, Other)
  Sender: FDA-Public Use
  Company Number: US-BRISTOL-MYERS SQUIBB COMPANY-BMS-2018-006715

PATIENT
  Age: 63 Year
  Sex: Female
  Weight: 117.02 kg

DRUGS (1)
  1. ORENCIA [Suspect]
     Active Substance: ABATACEPT
     Indication: RHEUMATOID ARTHRITIS
     Dosage: 125 MG, QWK
     Route: 058
     Dates: start: 201710

REACTIONS (11)
  - Drug ineffective [Unknown]
  - Nausea [Unknown]
  - Rash [Unknown]
  - Clostridium difficile infection [Unknown]
  - Vomiting [Unknown]
  - Pneumonia [Unknown]
  - Influenza [Unknown]
  - Cholelithiasis [Unknown]
  - Dehydration [Unknown]
  - Pain [Unknown]
  - Fall [Unknown]

NARRATIVE: CASE EVENT DATE: 20180828
